FAERS Safety Report 15323718 (Version 5)
Quarter: 2018Q3

REPORT INFORMATION
  Report Type: Spontaneous
  Country: US (occurrence: US)
  Receive Date: 20180828
  Receipt Date: 20180920
  Transmission Date: 20181010
  Serious: Yes (Other)
  Sender: FDA-Public Use
  Company Number: US-UNITED THERAPEUTICS-UNT-2018-013359

PATIENT
  Age: 63 Year
  Sex: Female
  Weight: 38.55 kg

DRUGS (5)
  1. TYVASO [Suspect]
     Active Substance: TREPROSTINIL
     Indication: PULMONARY ARTERIAL HYPERTENSION
     Dosage: 54 ?G, QID
     Dates: start: 20180730, end: 20180831
  2. TYVASO [Suspect]
     Active Substance: TREPROSTINIL
     Dosage: 30 ?G, QID
  3. TYVASO [Suspect]
     Active Substance: TREPROSTINIL
     Dosage: 18?54 MICROGRAMS, QID
  4. TYVASO [Suspect]
     Active Substance: TREPROSTINIL
     Dosage: UNK
  5. TYVASO [Suspect]
     Active Substance: TREPROSTINIL
     Dosage: 36 ?G, QID

REACTIONS (7)
  - Dyspnoea [Unknown]
  - Chest discomfort [Unknown]
  - Oxygen saturation decreased [Unknown]
  - Malaise [Unknown]
  - Palpitations [Unknown]
  - Ear discomfort [Unknown]
  - Head discomfort [Unknown]

NARRATIVE: CASE EVENT DATE: 20180818
